FAERS Safety Report 5241614-9 (Version None)
Quarter: 2007Q1

REPORT INFORMATION
  Report Type: 
  Country: None (occurrence: None)
  Receive Date: 20070215
  Receipt Date: 20070215
  Transmission Date: 20070707
  Serious: Yes (Disabling, Other)
  Sender: FDA-Public Use
  Company Number: None

PATIENT
  Age: 60 Year
  Sex: Male
  Weight: 79.3795 kg

DRUGS (2)
  1. PEGASYS [Suspect]
     Indication: HEPATITIS C
  2. RIBAVIRIN - DON'T KNOW [Suspect]
     Indication: HEPATITIS C

REACTIONS (1)
  - MYOCLONUS [None]
